FAERS Safety Report 10534062 (Version 2)
Quarter: 2014Q4

REPORT INFORMATION
  Report Type: Report from Study
  Country: JP (occurrence: JP)
  Receive Date: 20141022
  Receipt Date: 20141022
  Transmission Date: 20150529
  Serious: Yes (Other)
  Sender: FDA-Public Use
  Company Number: JP-AMGEN-JPNCT2014040688

PATIENT
  Sex: Female
  Weight: 52 kg

DRUGS (19)
  1. MELPHALAN [Concomitant]
     Active Substance: MELPHALAN
     Dosage: UNK, SINGLE
     Route: 065
     Dates: start: 20081205, end: 20081205
  2. UFT [Concomitant]
     Active Substance: TEGAFUR\URACIL
     Dosage: UNK
     Route: 065
     Dates: start: 20090417, end: 20101125
  3. PACLITAXEL. [Concomitant]
     Active Substance: PACLITAXEL
     Dosage: UNK, 3-COURSE
     Route: 065
     Dates: start: 20101119, end: 20130902
  4. PEMETREXED DISODIUM [Concomitant]
     Active Substance: PEMETREXED DISODIUM
     Dosage: UNK, 3-COURSE
     Route: 065
     Dates: start: 20130618, end: 20130902
  5. LYRICA [Concomitant]
     Active Substance: PREGABALIN
     Dosage: 175 MG, QD
     Route: 048
     Dates: start: 20120401, end: 20121210
  6. THYRADIN S [Concomitant]
     Active Substance: LEVOTHYROXINE SODIUM
     Dosage: 75 MG, QD
     Route: 048
     Dates: start: 20131209
  7. DENOSUMAB [Suspect]
     Active Substance: DENOSUMAB
     Indication: METASTASES TO BONE
     Dosage: 120 MG, UNK
     Route: 058
     Dates: start: 20131021, end: 20131021
  8. IRESSA [Concomitant]
     Active Substance: GEFITINIB
     Dosage: UNK
     Route: 065
     Dates: start: 20131025
  9. NORVASC [Concomitant]
     Active Substance: AMLODIPINE BESYLATE
     Dosage: 10 MG, QD
     Route: 048
     Dates: start: 20131209, end: 20131216
  10. GEMCITABINE HYDROCHLORIDE. [Concomitant]
     Active Substance: GEMCITABINE HYDROCHLORIDE
     Dosage: UNK, TWO COURSES
     Route: 065
     Dates: start: 20090116, end: 20090227
  11. URINORM [Concomitant]
     Active Substance: BENZBROMARONE
     Dosage: 25 MG, QD
     Route: 048
     Dates: start: 20091002, end: 20131212
  12. NEXIUM [Concomitant]
     Active Substance: ESOMEPRAZOLE MAGNESIUM
     Dosage: 10 MG, QD
     Route: 048
     Dates: start: 20131209
  13. DEPAS [Concomitant]
     Active Substance: ETIZOLAM
     Dosage: 0.5MG/DAY
     Route: 048
     Dates: start: 20131211
  14. ADALAT [Concomitant]
     Active Substance: NIFEDIPINE
     Dosage: 10 MG, QD
     Route: 048
     Dates: start: 20131216
  15. CARBOPLATIN. [Concomitant]
     Active Substance: CARBOPLATIN
     Dosage: 3-COURSE
     Route: 065
     Dates: start: 20081205, end: 20130902
  16. ETOPOSIDE. [Concomitant]
     Active Substance: ETOPOSIDE
     Dosage: UNK, SINGLE
     Route: 065
     Dates: start: 20081205, end: 20081205
  17. VINORELBINE [Concomitant]
     Active Substance: VINORELBINE\VINORELBINE TARTRATE
     Dosage: UNK, TWO COURSES
     Route: 065
     Dates: start: 20081205, end: 20090227
  18. TS-1 [Concomitant]
     Active Substance: GIMERACIL\OTERACIL\TEGAFUR
     Dosage: UNK
     Route: 065
     Dates: start: 20120114, end: 20120930
  19. FEBURIC [Concomitant]
     Active Substance: FEBUXOSTAT
     Dosage: 20 MG, QD
     Route: 048
     Dates: start: 20131209

REACTIONS (1)
  - Renal impairment [Not Recovered/Not Resolved]

NARRATIVE: CASE EVENT DATE: 20131029
